FAERS Safety Report 7992499 (Version 2)
Quarter: 2012Q4

REPORT INFORMATION
  Report Type: 
  Country: CA (occurrence: CA)
  Receive Date: 20110615
  Receipt Date: 20121109
  Transmission Date: 20130627
  Serious: Yes (Hospitalization, Other)
  Sender: FDA-Public Use
  Company Number: PHHY2007CA01005

PATIENT
  Sex: Female

DRUGS (3)
  1. SANDOSTATIN LAR [Suspect]
     Indication: HEPATIC NEOPLASM MALIGNANT
     Dosage: 20 mg, QMO
     Route: 030
     Dates: start: 20070212
  2. FERROUS SULFATE [Concomitant]
     Dates: start: 200708
  3. PREVACID [Concomitant]
     Dates: start: 200612

REACTIONS (15)
  - Haematochezia [Unknown]
  - Gastric varices [Unknown]
  - Malignant neoplasm progression [Unknown]
  - Initial insomnia [Unknown]
  - Night sweats [Recovered/Resolved]
  - Weight decreased [Unknown]
  - Blood pressure increased [Unknown]
  - Skin discolouration [Unknown]
  - Asthenia [Recovered/Resolved]
  - Diarrhoea [Unknown]
  - Fatigue [Unknown]
  - Injection site pain [Unknown]
  - Nausea [Unknown]
  - Decreased appetite [Unknown]
  - Abdominal discomfort [Unknown]
